FAERS Safety Report 20991409 (Version 1)
Quarter: 2022Q2

REPORT INFORMATION
  Report Type: Report from Study
  Country: US (occurrence: US)
  Receive Date: 20220622
  Receipt Date: 20220622
  Transmission Date: 20220721
  Serious: Yes (Other)
  Sender: FDA-Public Use
  Company Number: US-GILEAD-2022-0586202

PATIENT
  Sex: Female

DRUGS (13)
  1. AZTREONAM LYSINE [Suspect]
     Active Substance: AZTREONAM LYSINE
     Indication: Cystic fibrosis lung
     Dosage: 75 MG, TID, 28 DAYS ON/28 DAYS OFF
     Route: 055
     Dates: start: 202204
  2. AZTREONAM LYSINE [Suspect]
     Active Substance: AZTREONAM LYSINE
     Dosage: UNK
     Dates: start: 202204
  3. FISH OIL [Concomitant]
     Active Substance: FISH OIL
     Dosage: 1000MG BY MOUTH DAILY
     Dates: start: 20220614
  4. AZITHROMYCIN [Concomitant]
     Active Substance: AZITHROMYCIN
     Dosage: 500MG BY MOUTH 3XW
     Dates: start: 20220614
  5. CLARITIN [Concomitant]
     Active Substance: LORATADINE
     Dosage: 10MG BY MOUTH DAILY
     Dates: start: 20220614
  6. CREON [Concomitant]
     Active Substance: PANCRELIPASE AMYLASE\PANCRELIPASE LIPASE\PANCRELIPASE PROTEASE
     Dosage: 24-76-120K BY MOUTH 4 WITH MEALS 2-3 WITH SNACKS
     Dates: start: 20220614
  7. SINGULAIR [Concomitant]
     Active Substance: MONTELUKAST SODIUM
     Dosage: 10MG BY MOUTH DAILY
     Dates: start: 20220614
  8. PULMOZYME [Concomitant]
     Active Substance: DORNASE ALFA
     Dosage: INHALE 1 AMPULE (2.5 MG) VIA NEBULIZER ONCE A DAY
     Dates: start: 20220615
  9. IRON [Concomitant]
     Active Substance: IRON
     Dosage: 325(65) MG TABLET BY MOUTH DAILY
     Dates: start: 20220614
  10. VITAMINS NOS [Concomitant]
     Active Substance: VITAMINS
     Dosage: 1 CAPSULE BY MOUTH BID
     Dates: start: 20220614
  11. OMEPRAZOLE [Concomitant]
     Active Substance: OMEPRAZOLE
     Dosage: 10 MG CAPSULE BY MOUTH BID
     Dates: start: 20220614
  12. SODIUM CHLORIDE [Concomitant]
     Active Substance: SODIUM CHLORIDE
     Dosage: 7 % VIAL-NEBULIZER ONE BID
     Dates: start: 20220614
  13. TRIKAFTA [Concomitant]
     Active Substance: ELEXACAFTOR\IVACAFTOR\TEZACAFTOR
     Dosage: 100/50/75 MG AND 150 MG TAB 21S
     Dates: start: 202001

REACTIONS (1)
  - Coeliac disease [Unknown]
